FAERS Safety Report 7047301-9 (Version None)
Quarter: 2010Q4

REPORT INFORMATION
  Report Type: 
  Country: None (occurrence: None)
  Receive Date: 20101014
  Receipt Date: 20101014
  Transmission Date: 20110411
  Serious: Yes (Other)
  Sender: FDA-Public Use
  Company Number: None

PATIENT
  Age: 66 Year
  Sex: Female
  Weight: 68.4932 kg

DRUGS (1)
  1. TAXOTERE [Suspect]
     Indication: BREAST CANCER
     Dosage: 130 MG IVSS PER 22JEL10
     Route: 042
     Dates: start: 20100910

REACTIONS (4)
  - BACK PAIN [None]
  - ERYTHEMA [None]
  - FEELING HOT [None]
  - THROAT TIGHTNESS [None]
